FAERS Safety Report 23843485 (Version 1)
Quarter: 2024Q2

REPORT INFORMATION
  Report Type: Spontaneous
  Country: BR (occurrence: BR)
  Receive Date: 20240510
  Receipt Date: 20240510
  Transmission Date: 20240715
  Serious: Yes (Death)
  Sender: FDA-Public Use
  Company Number: BR-SA-SAC20220831000833

PATIENT

DRUGS (6)
  1. LARONIDASE [Suspect]
     Active Substance: LARONIDASE
     Indication: Mucopolysaccharidosis I
     Dosage: 5 DF, QOW
     Route: 042
     Dates: start: 20190522
  2. LARONIDASE [Suspect]
     Active Substance: LARONIDASE
     Dosage: UNK UNK, QW
     Route: 042
     Dates: end: 20240419
  3. LARONIDASE [Suspect]
     Active Substance: LARONIDASE
     Dosage: 13 DF, QW
     Route: 042
  4. LARONIDASE [Suspect]
     Active Substance: LARONIDASE
     Dosage: 3 DF, QW
     Route: 042
  5. LARONIDASE [Suspect]
     Active Substance: LARONIDASE
     Dosage: 5 DF, QW
     Route: 042
     Dates: start: 2022
  6. LARONIDASE [Suspect]
     Active Substance: LARONIDASE
     Dosage: UNK UNK, QW
     Route: 042
     Dates: start: 20200831

REACTIONS (14)
  - Respiratory disorder [Fatal]
  - Influenza [Fatal]
  - Atrophy [Recovered/Resolved]
  - Condition aggravated [Recovering/Resolving]
  - Gait inability [Recovered/Resolved]
  - Limb discomfort [Recovering/Resolving]
  - Pain in extremity [Recovering/Resolving]
  - Speech disorder [Recovering/Resolving]
  - Protrusion tongue [Recovering/Resolving]
  - Pain [Recovering/Resolving]
  - Atrophy [Recovering/Resolving]
  - Fatigue [Recovered/Resolved]
  - Fatigue [Recovering/Resolving]
  - Inappropriate schedule of product administration [Unknown]

NARRATIVE: CASE EVENT DATE: 20190522
